FAERS Safety Report 25942453 (Version 3)
Quarter: 2025Q4

REPORT INFORMATION
  Report Type: Spontaneous
  Country: EU (occurrence: EU)
  Receive Date: 20251021
  Receipt Date: 20251107
  Transmission Date: 20260118
  Serious: Yes (Other)
  Sender: EXELIXIS
  Company Number: EU-IPSEN Group, Research and Development-2025-25526

PATIENT
  Age: 74 Year
  Sex: Male

DRUGS (5)
  1. CABOMETYX [Suspect]
     Active Substance: CABOZANTINIB S-MALATE
     Indication: Metastatic renal cell carcinoma
     Dosage: IN COMBINATION WITH CO-SUSPECT DRUG NIVOLUMAB
     Dates: start: 202503, end: 2025
  2. CABOMETYX [Suspect]
     Active Substance: CABOZANTINIB S-MALATE
     Dosage: AS A MONOTHERAPY
     Dates: start: 202506
  3. NIVOLUMAB [Suspect]
     Active Substance: NIVOLUMAB
     Indication: Metastases to adrenals
     Dosage: 240 MG
     Dates: start: 202503
  4. DENOSUMAB [Concomitant]
     Active Substance: DENOSUMAB
     Indication: Product use in unapproved indication
     Dosage: UNK
     Route: 050
  5. Vitamin-D;calcium [Concomitant]
     Dosage: UNK

REACTIONS (10)
  - Hepatitis [Unknown]
  - Hypothyroidism [Unknown]
  - Hypertension [Unknown]
  - Palmar-plantar erythrodysaesthesia syndrome [Unknown]
  - Diarrhoea [Unknown]
  - Hepatic enzyme increased [Unknown]
  - Fatigue [Unknown]
  - Nausea [Unknown]
  - Decreased appetite [Unknown]
  - Off label use [Unknown]

NARRATIVE: CASE EVENT DATE: 20250101
